FAERS Safety Report 6862323-6 (Version None)
Quarter: 2010Q3

REPORT INFORMATION
  Report Type: 
  Country: None (occurrence: None)
  Receive Date: 20100721
  Receipt Date: 20100709
  Transmission Date: 20110219
  Serious: Yes (Other)
  Sender: FDA-Public Use
  Company Number: PHHY2010DE45677

PATIENT
  Sex: Female

DRUGS (6)
  1. DIOVAN [Suspect]
     Indication: HYPERTENSION
     Dosage: 160 MG, QD
     Dates: start: 20090701, end: 20100501
  2. DIOVAN [Suspect]
     Dosage: 240 MG, QD
     Dates: start: 20100501
  3. FLECAINIDE ACETATE [Suspect]
     Indication: ARRHYTHMIA
     Dosage: UNK
     Dates: start: 20100616
  4. FELODIPINE [Concomitant]
  5. PREDNI [Concomitant]
     Indication: RESPIRATORY DISORDER
  6. CORTISON [Concomitant]
     Indication: RESPIRATORY DISORDER

REACTIONS (4)
  - ABDOMINAL DISCOMFORT [None]
  - ARRHYTHMIA [None]
  - DYSPEPSIA [None]
  - GASTRITIS [None]
